FAERS Safety Report 13610106 (Version 1)
Quarter: 2017Q2

REPORT INFORMATION
  Report Type: Other
  Country: US (occurrence: US)
  Receive Date: 20170604
  Receipt Date: 20170604
  Transmission Date: 20170830
  Serious: Yes (Hospitalization, Other)
  Sender: FDA-Public Use
  Company Number: US-HETERO LABS LTD-2021533

PATIENT
  Age: 44 Year
  Sex: Male

DRUGS (4)
  1. RALTEGRAVIR. [Suspect]
     Active Substance: RALTEGRAVIR
     Indication: HIV INFECTION
     Route: 065
  2. EFAVIRENZ [Suspect]
     Active Substance: EFAVIRENZ
     Route: 065
  3. LAMIVUDINE. [Suspect]
     Active Substance: LAMIVUDINE
     Route: 065
  4. ABACAVIR. [Suspect]
     Active Substance: ABACAVIR
     Route: 065

REACTIONS (4)
  - Insomnia [Unknown]
  - Hyperglycaemia [Recovering/Resolving]
  - Blood triglycerides increased [Unknown]
  - Diabetes mellitus [Recovering/Resolving]
